FAERS Safety Report 4546756-9 (Version None)
Quarter: 2005Q1

REPORT INFORMATION
  Report Type: 
  Country: None (occurrence: None)
  Receive Date: 20050106
  Receipt Date: 20041020
  Transmission Date: 20050727
  Serious: Yes (Other)
  Sender: FDA-Public Use
  Company Number: US-ABBOTT-04P-163-0278492-00

PATIENT
  Sex: Female
  Weight: 91.8 kg

DRUGS (12)
  1. HUMIRA [Suspect]
     Indication: RHEUMATOID ARTHRITIS
     Route: 058
     Dates: start: 20030514, end: 20040108
  2. HUMIRA [Suspect]
     Route: 058
     Dates: start: 20040109, end: 20040125
  3. HUMIRA [Suspect]
     Route: 058
     Dates: start: 20040126
  4. SULFASALAZINE [Concomitant]
     Indication: DRUG USE FOR UNKNOWN INDICATION
  5. ESOMEPRAZOLE [Concomitant]
     Indication: DRUG USE FOR UNKNOWN INDICATION
  6. INSULIN [Concomitant]
     Indication: DRUG USE FOR UNKNOWN INDICATION
  7. ACETYLSALICYLIC ACID SRT [Concomitant]
     Indication: DRUG USE FOR UNKNOWN INDICATION
  8. AMLODIPINE BESYLATE [Concomitant]
     Indication: DRUG USE FOR UNKNOWN INDICATION
  9. METOPROLOL [Concomitant]
     Indication: DRUG USE FOR UNKNOWN INDICATION
  10. IRBESARTAN [Concomitant]
     Indication: DRUG USE FOR UNKNOWN INDICATION
  11. POTASSIUM CHLORIDE [Concomitant]
     Indication: DRUG USE FOR UNKNOWN INDICATION
  12. FUROSEMIDE [Concomitant]
     Indication: DRUG USE FOR UNKNOWN INDICATION

REACTIONS (2)
  - HYPERVISCOSITY SYNDROME [None]
  - VISION BLURRED [None]
